FAERS Safety Report 13058359 (Version 2)
Quarter: 2017Q1

REPORT INFORMATION
  Report Type: Spontaneous
  Country: US (occurrence: US)
  Receive Date: 20161223
  Receipt Date: 20170220
  Transmission Date: 20170428
  Serious: No
  Sender: FDA-Public Use
  Company Number: US-PFIZER INC-2016582948

PATIENT
  Age: 81 Year
  Sex: Male
  Weight: 72.57 kg

DRUGS (3)
  1. K-PHOS [Suspect]
     Active Substance: POTASSIUM PHOSPHATE, MONOBASIC
     Indication: BLOOD POTASSIUM DECREASED
     Dosage: 1000 MG, DAILY
  2. K-PHOS [Suspect]
     Active Substance: POTASSIUM PHOSPHATE, MONOBASIC
     Dosage: 750 MG, 1X/DAY
  3. XALKORI [Suspect]
     Active Substance: CRIZOTINIB
     Dosage: 250 MG, 2X/DAY
     Dates: start: 201206

REACTIONS (1)
  - Diarrhoea [Unknown]
